FAERS Safety Report 17444624 (Version 1)
Quarter: 2020Q1

REPORT INFORMATION
  Report Type: Report from Study
  Country: CA (occurrence: CA)
  Receive Date: 20200221
  Receipt Date: 20200221
  Transmission Date: 20200409
  Serious: Yes (Other)
  Sender: FDA-Public Use
  Company Number: CA-TEVA-2020-CA-1186013

PATIENT
  Age: 45 Year
  Sex: Female
  Weight: 76 kg

DRUGS (9)
  1. METHOTREXATE. [Concomitant]
     Active Substance: METHOTREXATE
     Route: 065
  2. METHYLPREDNISOLONE SODIUM SUCCINATE. [Suspect]
     Active Substance: METHYLPREDNISOLONE SODIUM SUCCINATE
     Indication: PREMEDICATION
     Route: 042
  3. TYLENOL[PARACETAMOL] [Concomitant]
     Active Substance: ACETAMINOPHEN
     Route: 048
  4. BENADRYL [Concomitant]
     Active Substance: DIPHENHYDRAMINE HYDROCHLORIDE
     Route: 048
  5. REMICADE [Concomitant]
     Active Substance: INFLIXIMAB
     Route: 065
  6. SYNTHROID [Concomitant]
     Active Substance: LEVOTHYROXINE SODIUM
  7. RITUXIMAB. [Suspect]
     Active Substance: RITUXIMAB
     Indication: RHEUMATOID ARTHRITIS
     Route: 042
  8. CETIRIZINE HYDROCHLORIDE. [Concomitant]
     Active Substance: CETIRIZINE HYDROCHLORIDE
  9. FOLIC ACID. [Concomitant]
     Active Substance: FOLIC ACID

REACTIONS (6)
  - Neuropathy peripheral [Recovered/Resolved]
  - Respiratory tract infection viral [Recovered/Resolved]
  - Psychomotor hyperactivity [Recovered/Resolved]
  - Weight increased [Recovered/Resolved]
  - Aphonia [Recovered/Resolved]
  - Drug hypersensitivity [Recovered/Resolved]
